FAERS Safety Report 6445209-0 (Version None)
Quarter: 2009Q4

REPORT INFORMATION
  Report Type: 
  Country: None (occurrence: None)
  Receive Date: 20091118
  Receipt Date: 20090930
  Transmission Date: 20100525
  Serious: No
  Sender: FDA-Public Use
  Company Number: US-BRISTOL-MYERS SQUIBB COMPANY-14802060

PATIENT
  Age: 62 Year
  Sex: Female
  Weight: 69 kg

DRUGS (16)
  1. GLUCOPHAGE XR [Suspect]
  2. METFORMIN HCL [Suspect]
  3. STARLIX [Concomitant]
  4. ATENOLOL [Concomitant]
  5. LISINOPRIL [Concomitant]
  6. CLONIDINE [Concomitant]
  7. PLAVIX [Concomitant]
  8. NEXIUM [Concomitant]
  9. ISORBID [Concomitant]
  10. SYNTHROID [Concomitant]
  11. BUMEX [Concomitant]
  12. ASPIRIN [Concomitant]
  13. NABUMETONE [Concomitant]
  14. FOLIC ACID [Concomitant]
  15. IRON [Concomitant]
  16. NAPROXEN [Concomitant]

REACTIONS (2)
  - PRURITUS [None]
  - RASH [None]
